FAERS Safety Report 12423064 (Version 12)
Quarter: 2017Q2

REPORT INFORMATION
  Report Type: Spontaneous
  Country: US (occurrence: US)
  Receive Date: 20160601
  Receipt Date: 20170616
  Transmission Date: 20170830
  Serious: Yes (Hospitalization, Other)
  Sender: FDA-Public Use
  Company Number: US-PFIZER INC-2016264115

PATIENT
  Age: 69 Year
  Sex: Female
  Weight: 95.69 kg

DRUGS (24)
  1. MUCINEX [Concomitant]
     Active Substance: GUAIFENESIN
     Dosage: UNK
  2. ULTRAM [Concomitant]
     Active Substance: TRAMADOL HYDROCHLORIDE
     Dosage: 150 MG, AS NEEDED (THREE TIMES A DAY)
  3. SUTENT [Suspect]
     Active Substance: SUNITINIB MALATE
     Indication: RENAL CELL CARCINOMA
     Dosage: 37.5 MG, CYCLIC (DAYS 1-14  EVERY 21 DAYS / 14 DAYS ON, 7 DAYS OFF)
     Route: 048
     Dates: start: 20160218
  4. PLAVIX [Concomitant]
     Active Substance: CLOPIDOGREL BISULFATE
     Dosage: 75 MG, UNK
  5. CERITINIB [Concomitant]
     Active Substance: CERITINIB
     Dosage: 1 DF, (37.5) DAILY
  6. NOVOLOG [Concomitant]
     Active Substance: INSULIN ASPART
     Dosage: UNK (SLIDING SCALE)
  7. SUTENT [Suspect]
     Active Substance: SUNITINIB MALATE
     Dosage: 37.5 MG, CYCLIC (DAILY 14 DAYS ON, 7 DAYS OFF)
     Route: 048
     Dates: start: 20160328, end: 20160819
  8. LANTUS [Concomitant]
     Active Substance: INSULIN GLARGINE
     Dosage: 40 IU, UNK (AT BREAKFAST)
  9. TYLENOL [Concomitant]
     Active Substance: ACETAMINOPHEN
     Dosage: 325 MG, AS NEEDED (TWICE A DAY)
  10. ASA [Concomitant]
     Active Substance: ASPIRIN
     Dosage: 81 MG, UNK
  11. LEVOTHYROXINE. [Concomitant]
     Active Substance: LEVOTHYROXINE
     Dosage: 88 UG, UNK (BEFORE BREAKFAST)
  12. FISH OIL [Concomitant]
     Active Substance: FISH OIL
     Dosage: 1000 MG, DAILY
  13. SUTENT [Suspect]
     Active Substance: SUNITINIB MALATE
     Dosage: 37.5 MG, CYCLIC (D 1-14 Q 21 DAYS)
     Route: 048
     Dates: start: 20160210
  14. ALLOPURINOL. [Concomitant]
     Active Substance: ALLOPURINOL
     Dosage: 100 MG, UNK
  15. LOSARTAN. [Concomitant]
     Active Substance: LOSARTAN
     Dosage: 100 MG, DAILY
  16. SUTENT [Suspect]
     Active Substance: SUNITINIB MALATE
     Indication: METASTATIC RENAL CELL CARCINOMA
     Dosage: 37.5 MG, CYCLIC (D1-D14 Q21D) (D1- 14 Q28 DAYS)
     Route: 048
     Dates: start: 20160210
  17. SUTENT [Suspect]
     Active Substance: SUNITINIB MALATE
     Dosage: UNK
     Dates: start: 20160920
  18. SUTENT [Suspect]
     Active Substance: SUNITINIB MALATE
     Dosage: 37.5 MG, CYCLIC (D1-D14 Q21 DAYS)
     Route: 048
     Dates: start: 20160210
  19. ALLOPURINOL. [Concomitant]
     Active Substance: ALLOPURINOL
     Dosage: 200 MG, DAILY
  20. LIPITOR [Concomitant]
     Active Substance: ATORVASTATIN CALCIUM
     Dosage: 80 MG, UNK
  21. COREG [Concomitant]
     Active Substance: CARVEDILOL
     Dosage: 12.5 MG, 2X/DAY
  22. COLCRYS [Concomitant]
     Active Substance: COLCHICINE
     Dosage: 0.6 MG, UNK
  23. COMPAZINE [Concomitant]
     Active Substance: PROCHLORPERAZINE MALEATE
     Dosage: 10 MG, AS NEEDED
  24. PROCHLORPERAZINE /00013302/ [Concomitant]
     Dosage: 10 MG, AS NEEDED

REACTIONS (15)
  - Renal impairment [Unknown]
  - Acute myocardial infarction [Recovering/Resolving]
  - Coronary artery occlusion [Unknown]
  - Blood pressure increased [Unknown]
  - Dysgeusia [Unknown]
  - Hypothyroidism [Unknown]
  - Glossodynia [Unknown]
  - Tongue discolouration [Unknown]
  - Salivary hypersecretion [Unknown]
  - Diarrhoea [Unknown]
  - Thyroid disorder [Unknown]
  - Tooth disorder [Unknown]
  - Drooling [Unknown]
  - Gout [Unknown]
  - Pain in extremity [Unknown]

NARRATIVE: CASE EVENT DATE: 20160819
